FAERS Safety Report 6861294-6 (Version None)
Quarter: 2010Q3

REPORT INFORMATION
  Report Type: 
  Country: None (occurrence: None)
  Receive Date: 20100720
  Receipt Date: 20100708
  Transmission Date: 20110219
  Serious: Yes (Other)
  Sender: FDA-Public Use
  Company Number: US-PFIZER INC-2010068151

PATIENT
  Sex: Female

DRUGS (1)
  1. CHANTIX [Suspect]
     Indication: SMOKING CESSATION THERAPY
     Dosage: 0.5 MG, 1X/DAY
     Dates: start: 20070101

REACTIONS (9)
  - ACCIDENT [None]
  - AGITATION [None]
  - DIABETES MELLITUS [None]
  - DRUG INEFFECTIVE [None]
  - INTERVERTEBRAL DISC INJURY [None]
  - IRRITABILITY [None]
  - MYOCARDIAL INFARCTION [None]
  - NERVOUSNESS [None]
  - PALPITATIONS [None]
